FAERS Safety Report 6089115-2 (Version None)
Quarter: 2009Q1

REPORT INFORMATION
  Report Type: 
  Country: None (occurrence: None)
  Receive Date: 20090224
  Receipt Date: 20090212
  Transmission Date: 20090719
  Serious: Yes (Other)
  Sender: FDA-Public Use
  Company Number: US-ELI_LILLY_AND_COMPANY-US200902002846

PATIENT
  Sex: Female

DRUGS (1)
  1. CYMBALTA [Suspect]
     Dosage: 60 MG, UNK

REACTIONS (6)
  - DIARRHOEA [None]
  - FATIGUE [None]
  - GASTROENTERITIS VIRAL [None]
  - HEPATIC ENZYME ABNORMAL [None]
  - RASH [None]
  - VOMITING [None]
